FAERS Safety Report 8608291-8 (Version None)
Quarter: 2012Q3

REPORT INFORMATION
  Report Type: 
  Country: None (occurrence: None)
  Receive Date: 20120809
  Receipt Date: 20120809
  Transmission Date: 20120928
  Serious: Yes (Disabling)
  Sender: FDA-Public Use
  Company Number: None

PATIENT
  Age: 53 Year
  Sex: Male
  Weight: 80.7403 kg

DRUGS (3)
  1. REMICADE [Suspect]
     Indication: ANKYLOSING SPONDYLITIS
     Dosage: 400 MG, EVERY 4 WEEKS, IV DRIP
     Route: 041
     Dates: start: 20111003, end: 20120114
  2. REMICADE [Concomitant]
  3. METHOTREXATE [Concomitant]

REACTIONS (3)
  - PSORIASIS [None]
  - RASH PUSTULAR [None]
  - DERMATITIS CONTACT [None]
